FAERS Safety Report 15942986 (Version 1)
Quarter: 2019Q1

REPORT INFORMATION
  Report Type: Spontaneous
  Country: US (occurrence: US)
  Receive Date: 20190210
  Receipt Date: 20190210
  Transmission Date: 20190417
  Serious: No
  Sender: FDA-Public Use
  Company Number: US-009507513-1902USA000537

PATIENT
  Sex: Female
  Weight: 95.24 kg

DRUGS (2)
  1. PRINIVIL [Suspect]
     Active Substance: LISINOPRIL
     Indication: HYPERTENSION
     Dosage: 10 MILLIGRAM, QID
     Dates: start: 2016, end: 2016
  2. LISINOPRIL TEVA [Suspect]
     Active Substance: LISINOPRIL
     Dosage: UNK

REACTIONS (8)
  - Bone marrow disorder [Unknown]
  - Epistaxis [Unknown]
  - Toxicity to various agents [Unknown]
  - Drug ineffective [Not Recovered/Not Resolved]
  - Palpitations [Unknown]
  - Dizziness [Unknown]
  - Dyspnoea [Not Recovered/Not Resolved]
  - Blood pressure inadequately controlled [Unknown]

NARRATIVE: CASE EVENT DATE: 2016
